FAERS Safety Report 8548069-7 (Version None)
Quarter: 2012Q3

REPORT INFORMATION
  Report Type: 
  Country: None (occurrence: None)
  Receive Date: 20120730
  Receipt Date: 20120723
  Transmission Date: 20120928
  Serious: Yes (Hospitalization, Other)
  Sender: FDA-Public Use
  Company Number: US-MSD-1207USA010597

PATIENT

DRUGS (5)
  1. CALCIUM (UNSPECIFIED) [Suspect]
     Dosage: 600 MG, QD
     Route: 048
  2. VYTORIN [Suspect]
     Route: 048
  3. WELLBUTRIN SR [Suspect]
     Dosage: 150 MG, QD
     Route: 048
  4. FOSAMAX [Suspect]
     Dosage: 70 MG, QD
     Route: 048
  5. STUDY VACCINATION (UNSPECIFIED) [Suspect]
     Dosage: UNK
     Route: 030

REACTIONS (3)
  - DIVERTICULITIS [None]
  - DIARRHOEA [None]
  - ANASTOMOTIC LEAK [None]
